FAERS Safety Report 8266463-9 (Version None)
Quarter: 2012Q2

REPORT INFORMATION
  Report Type: 
  Country: None (occurrence: None)
  Receive Date: 20120406
  Receipt Date: 20120402
  Transmission Date: 20120825
  Serious: Yes (Life-Threatening, Hospitalization, Other)
  Sender: FDA-Public Use
  Company Number: FR-ASTRAZENECA-2012SE22304

PATIENT
  Sex: Female

DRUGS (5)
  1. VOLTARENE EMULGEL 1% [Suspect]
     Indication: BACK PAIN
     Route: 003
     Dates: start: 20111201, end: 20120204
  2. RABEPRAZOLE SODIUM [Suspect]
     Route: 048
     Dates: start: 20110101, end: 20120204
  3. LYRICA [Suspect]
     Route: 048
     Dates: start: 20120101, end: 20120204
  4. VALSARTAN  AND HYDROCHLOROTHIAZIDE [Suspect]
     Indication: HYPERTENSION
     Dosage: 160 MG / 12.5 MG DAILY
     Route: 048
     Dates: start: 20110101, end: 20120204
  5. CRESTOR [Suspect]
     Route: 048
     Dates: start: 20100101, end: 20120204

REACTIONS (2)
  - RENAL FAILURE ACUTE [None]
  - PULMONARY EMBOLISM [None]
